FAERS Safety Report 21501280 (Version 1)
Quarter: 2022Q4

REPORT INFORMATION
  Report Type: Report from Study
  Country: US (occurrence: US)
  Receive Date: 20221025
  Receipt Date: 20221025
  Transmission Date: 20230113
  Serious: Yes (Hospitalization)
  Sender: FDA-Public Use
  Company Number: US-SERVIER-S21012249

PATIENT

DRUGS (5)
  1. TENORMIN [Concomitant]
     Active Substance: ATENOLOL
     Indication: Hypertension
     Dosage: 25 MG, BID
     Route: 048
     Dates: start: 20210225
  2. VITAMIN B COMPLEX [Concomitant]
     Active Substance: CYANOCOBALAMIN\DEXPANTHENOL\NIACINAMIDE\PYRIDOXINE HYDROCHLORIDE\RIBOFLAVIN 5^-PHOSPHATE SODIUM\THIA
     Indication: Anaemia
     Dosage: 1 DF, QD
     Route: 048
     Dates: start: 20210225
  3. ZOVIRAX [Concomitant]
     Active Substance: ACYCLOVIR
     Indication: Antiviral prophylaxis
     Dosage: 400 MG, BID
     Route: 048
     Dates: start: 20210408
  4. CRESEMBA [Concomitant]
     Active Substance: ISAVUCONAZONIUM SULFATE
     Indication: Antifungal prophylaxis
     Dosage: 372 MG, QD
     Route: 048
     Dates: start: 20210408
  5. VANTIN [Concomitant]
     Active Substance: CEFPODOXIME PROXETIL
     Indication: Antibiotic prophylaxis
     Dosage: 200 MG, BID
     Route: 048
     Dates: start: 20210412

REACTIONS (5)
  - Fatigue [Recovered/Resolved]
  - Pyrexia [Recovered/Resolved]
  - Febrile neutropenia [Recovered/Resolved]
  - Fatigue [Recovered/Resolved]
  - Febrile neutropenia [Recovered/Resolved]

NARRATIVE: CASE EVENT DATE: 20211021
